FAERS Safety Report 12273804 (Version 3)
Quarter: 2016Q4

REPORT INFORMATION
  Report Type: Spontaneous
  Country: US (occurrence: US)
  Receive Date: 20160415
  Receipt Date: 20161213
  Transmission Date: 20170207
  Serious: Yes (Other)
  Sender: FDA-Public Use
  Company Number: US-TEVA-651812USA

PATIENT
  Age: 48 Year
  Sex: Female

DRUGS (10)
  1. IMITREX [Concomitant]
     Active Substance: SUMATRIPTAN SUCCINATE
  2. ZANAFLEX [Concomitant]
     Active Substance: TIZANIDINE HYDROCHLORIDE
  3. TOPAMAX [Concomitant]
     Active Substance: TOPIRAMATE
  4. BOTOX [Concomitant]
     Active Substance: ONABOTULINUMTOXINA
  5. NORCO [Concomitant]
     Active Substance: ACETAMINOPHEN\HYDROCODONE BITARTRATE
  6. OMEPRAZOLE. [Concomitant]
     Active Substance: OMEPRAZOLE
  7. ZECUITY [Suspect]
     Active Substance: SUMATRIPTAN SUCCINATE
     Indication: MIGRAINE WITHOUT AURA
     Dosage: UD
     Route: 062
     Dates: start: 20151105
  8. CAMBIA [Concomitant]
     Active Substance: DICLOFENAC POTASSIUM
  9. NORFLEX [Concomitant]
     Active Substance: ORPHENADRINE CITRATE
  10. ZECUITY [Suspect]
     Active Substance: SUMATRIPTAN SUCCINATE
     Dosage: UD
     Route: 062
     Dates: start: 201603

REACTIONS (4)
  - Application site burn [Recovered/Resolved]
  - Application site irritation [Recovered/Resolved]
  - Nausea [Unknown]
  - Application site erythema [Recovered/Resolved]

NARRATIVE: CASE EVENT DATE: 201603
